FAERS Safety Report 7678015-X (Version None)
Quarter: 2011Q3

REPORT INFORMATION
  Report Type: 
  Country: None (occurrence: None)
  Receive Date: 20110811
  Receipt Date: 20110103
  Transmission Date: 20111222
  Serious: Yes (Other)
  Sender: FDA-Public Use
  Company Number: AT-GLAXOSMITHKLINE-B0687049A

PATIENT
  Sex: Female
  Weight: 54 kg

DRUGS (1)
  1. MALARONE [Suspect]
     Indication: MALARIA PROPHYLAXIS
     Dosage: 1TAB PER DAY
     Route: 065

REACTIONS (5)
  - DELIRIUM [None]
  - RASH [None]
  - MIGRAINE [None]
  - DIARRHOEA [None]
  - HEADACHE [None]
